FAERS Safety Report 15663643 (Version 1)
Quarter: 2018Q4

REPORT INFORMATION
  Report Type: Spontaneous
  Country: GB (occurrence: GB)
  Receive Date: 20181128
  Receipt Date: 20181128
  Transmission Date: 20190205
  Serious: Yes (Other)
  Sender: FDA-Public Use
  Company Number: GB-SUN PHARMACEUTICAL INDUSTRIES LTD-2018RR-192145

PATIENT
  Age: 73 Year
  Sex: Female

DRUGS (1)
  1. DIHYDROCODEINE [Suspect]
     Active Substance: DIHYDROCODEINE
     Indication: PRODUCT USED FOR UNKNOWN INDICATION
     Dosage: ON NIGHT
     Route: 065
     Dates: start: 20180621

REACTIONS (3)
  - Hallucination [Unknown]
  - Malaise [Unknown]
  - Incorrect product dosage form administered [Unknown]

NARRATIVE: CASE EVENT DATE: 20180622
